FAERS Safety Report 5102601-4 (Version None)
Quarter: 2006Q3

REPORT INFORMATION
  Report Type: 
  Country: None (occurrence: None)
  Receive Date: 20060912
  Receipt Date: 20051219
  Transmission Date: 20061208
  Serious: Yes (Hospitalization)
  Sender: FDA-Public Use
  Company Number: GB-MERCK-0512USA03372

PATIENT
  Age: 60 Year
  Sex: Male

DRUGS (4)
  1. PRINIVIL [Suspect]
     Route: 048
  2. PRINIVIL [Suspect]
     Route: 048
  3. ASPIRIN [Suspect]
     Route: 065
  4. RANITIDINE [Suspect]
     Route: 048

REACTIONS (17)
  - ACUTE MYOCARDIAL INFARCTION [None]
  - AGITATION [None]
  - ANAPHYLACTIC REACTION [None]
  - ANGIONEUROTIC OEDEMA [None]
  - CYANOSIS [None]
  - DYSPNOEA [None]
  - HAEMORRHAGE [None]
  - LARYNGEAL OEDEMA [None]
  - MYOCARDIAL INFARCTION [None]
  - OXYGEN SATURATION DECREASED [None]
  - PLEURAL EFFUSION [None]
  - PNEUMOPERICARDIUM [None]
  - PNEUMOTHORAX [None]
  - RESPIRATORY DISTRESS [None]
  - STRIDOR [None]
  - TACHYCARDIA [None]
  - WHEEZING [None]
